FAERS Safety Report 5015489-7 (Version None)
Quarter: 2006Q2

REPORT INFORMATION
  Report Type: 
  Country: None (occurrence: None)
  Receive Date: 20060530
  Receipt Date: 20060530
  Transmission Date: 20061013
  Serious: Yes (Other)
  Sender: FDA-Public Use
  Company Number: None

PATIENT
  Age: 76 Year
  Sex: Male
  Weight: 98.7 kg

DRUGS (19)
  1. LISINOPRIL [Suspect]
  2. GLYBURIDE 5 MG/METFORMIN HCL [Concomitant]
  3. OMEPRAZOLE [Concomitant]
  4. GABAPENTIN [Concomitant]
  5. DOCUSATE NA [Concomitant]
  6. ASPIRIN [Concomitant]
  7. CODEINE 30/ACETAMINOPHEN [Concomitant]
  8. DIAZEPAM [Concomitant]
  9. SIMVASTATIN [Concomitant]
  10. VITAMIN E [Concomitant]
  11. PRIMIDONE [Concomitant]
  12. IPRATROPIUM INHL [Concomitant]
  13. ALBUTEROL (REMIX) INHL [Concomitant]
  14. IPRATROPIUM INHL [Concomitant]
  15. HEPARIN SODIUM [Concomitant]
  16. GLYBURIDE AND METFORMIN HCL [Concomitant]
  17. FOSINOPRIL SODIUM [Concomitant]
  18. CASTOR OIL/PERUVIAN BALSAM/TRYPSIN [Concomitant]
  19. ACETAMINOPHEN [Concomitant]

REACTIONS (1)
  - RENAL IMPAIRMENT [None]
